FAERS Safety Report 8119939-9 (Version None)
Quarter: 2012Q1

REPORT INFORMATION
  Report Type: 
  Country: None (occurrence: None)
  Receive Date: 20120207
  Receipt Date: 20120123
  Transmission Date: 20120608
  Serious: Yes (Other)
  Sender: FDA-Public Use
  Company Number: US-WATSON-2012-01847

PATIENT
  Age: 63 Year
  Sex: Male

DRUGS (1)
  1. TESTOSTERONE [Suspect]
     Indication: PRODUCT USED FOR UNKNOWN INDICATION
     Dosage: 50 MG, DAILY
     Route: 061

REACTIONS (1)
  - PULMONARY EMBOLISM [None]
